FAERS Safety Report 6917652-4 (Version None)
Quarter: 2010Q3

REPORT INFORMATION
  Report Type: 
  Country: None (occurrence: None)
  Receive Date: 20100806
  Receipt Date: 20100603
  Transmission Date: 20110219
  Serious: Yes (Life-Threatening, Hospitalization)
  Sender: FDA-Public Use
  Company Number: CTI_01197_2010

PATIENT
  Sex: Male

DRUGS (12)
  1. CUROSURF [Suspect]
     Indication: NEONATAL RESPIRATORY DISTRESS SYNDROME
     Dosage: (120 MG BID, GIVEN AT 9:30 PM AND 11:30 PM ENDOTRACHEAL), (120 MG QD, GIVEN AT 4 AM ENDOTRACHEAL)
     Dates: start: 20100422, end: 20100422
  2. CUROSURF [Suspect]
     Indication: NEONATAL RESPIRATORY DISTRESS SYNDROME
     Dosage: (120 MG BID, GIVEN AT 9:30 PM AND 11:30 PM ENDOTRACHEAL), (120 MG QD, GIVEN AT 4 AM ENDOTRACHEAL)
     Dates: start: 20100423, end: 20100423
  3. CUROSURF [Suspect]
  4. AMPICILLIN SODIUM [Concomitant]
  5. CEFOTAXIME SODIUM [Concomitant]
  6. THEOPHYLLINE [Concomitant]
  7. GENTAMICIN [Concomitant]
  8. KONAKION [Concomitant]
  9. MSI [Concomitant]
  10. PANCURONIUM [Concomitant]
  11. DOBUTREX [Concomitant]
  12. ARTERENOL [Concomitant]

REACTIONS (2)
  - NEONATAL DISORDER [None]
  - PNEUMOTHORAX [None]
